FAERS Safety Report 11520237 (Version 1)
Quarter: 2015Q3

REPORT INFORMATION
  Report Type: Spontaneous
  Country: US (occurrence: US)
  Receive Date: 20150918
  Receipt Date: 20150918
  Transmission Date: 20151125
  Serious: No
  Sender: FDA-Public Use
  Company Number: US-RB-073514-15

PATIENT

DRUGS (4)
  1. DELSYM NIGHT TIME COUGH AND COLD [Suspect]
     Active Substance: DIPHENHYDRAMINE HYDROCHLORIDE\PHENYLEPHRINE HYDROCHLORIDE
     Dosage: 20ML. DRUG WAS LAST USED ON 04-FEB-2015 AT 8:00PM,QD
     Route: 065
     Dates: start: 20150204
  2. MUCINEX MAXIMUM STRENGTH [Suspect]
     Active Substance: GUAIFENESIN
     Indication: PRODUCT USED FOR UNKNOWN INDICATION
     Dosage: 1200MG. ,FREQUENCY UNK
     Route: 065
     Dates: start: 20150203
  3. MUCINEX MAXIMUM STRENGTH [Suspect]
     Active Substance: GUAIFENESIN
     Dosage: 1200MG. DRUG WAS LAST USED ON 04-FEB-2015 AT 6:00PM,BID
     Route: 065
     Dates: start: 20150204
  4. DELSYM NIGHT TIME COUGH AND COLD [Suspect]
     Active Substance: DIPHENHYDRAMINE HYDROCHLORIDE\PHENYLEPHRINE HYDROCHLORIDE
     Indication: PRODUCT USED FOR UNKNOWN INDICATION
     Dosage: 20ML. ,FREQUENCY UNK
     Route: 065
     Dates: start: 20150203

REACTIONS (2)
  - Joint swelling [Not Recovered/Not Resolved]
  - Peripheral swelling [Not Recovered/Not Resolved]

NARRATIVE: CASE EVENT DATE: 20150204
